FAERS Safety Report 6176255-2 (Version None)
Quarter: 2009Q2

REPORT INFORMATION
  Report Type: 
  Country: None (occurrence: None)
  Receive Date: 20090501
  Receipt Date: 20090423
  Transmission Date: 20091009
  Serious: Yes (Other)
  Sender: FDA-Public Use
  Company Number: B0562812A

PATIENT
  Sex: Male

DRUGS (12)
  1. ZOVIRAX [Suspect]
     Indication: DRUG USE FOR UNKNOWN INDICATION
     Route: 042
     Dates: start: 20090113, end: 20090101
  2. ROCEPHIN [Concomitant]
     Route: 042
     Dates: start: 20090113, end: 20090115
  3. VALPROATE SODIUM [Concomitant]
     Indication: STATUS EPILEPTICUS
     Route: 042
     Dates: start: 20090114, end: 20090124
  4. PENTOTHAL [Concomitant]
     Indication: STATUS EPILEPTICUS
     Route: 042
     Dates: start: 20090115, end: 20090121
  5. ISOFLURANE [Concomitant]
     Indication: STATUS EPILEPTICUS
     Route: 055
     Dates: start: 20090124, end: 20090128
  6. DORMICUM [Concomitant]
     Indication: STATUS EPILEPTICUS
     Route: 042
     Dates: start: 20090101
  7. PROPOFOL [Concomitant]
     Indication: STATUS EPILEPTICUS
     Route: 042
     Dates: start: 20090101
  8. FUROSEMIDE [Concomitant]
     Dates: start: 20090118
  9. PHENOBARBITAL [Concomitant]
     Dates: start: 20090124
  10. PHENYTOIN [Concomitant]
     Dates: start: 20090124
  11. LEVETIRACETAM [Concomitant]
     Dates: start: 20090124
  12. CARBAMAZEPINE [Concomitant]
     Dates: start: 20090124

REACTIONS (4)
  - GLOMERULAR FILTRATION RATE DECREASED [None]
  - RENAL FAILURE ACUTE [None]
  - STATUS EPILEPTICUS [None]
  - URINE OUTPUT DECREASED [None]
